FAERS Safety Report 9496934 (Version 1)
Quarter: 2013Q3

REPORT INFORMATION
  Report Type: Spontaneous
  Country: FR (occurrence: None)
  Receive Date: 20130830
  Receipt Date: 20130830
  Transmission Date: 20140515
  Serious: Yes (Hospitalization)
  Sender: FDA-Public Use
  Company Number: 2013P1018845

PATIENT
  Age: 62 Year
  Sex: Male

DRUGS (2)
  1. ALBENDAZOLE [Suspect]
     Indication: INFECTION PARASITIC
     Route: 048
     Dates: start: 2013, end: 20130720
  2. PREDNISONE [Concomitant]

REACTIONS (6)
  - Eosinophilia [None]
  - Device related infection [None]
  - Dermatitis exfoliative [None]
  - Cheilitis [None]
  - Toxic skin eruption [None]
  - Staphylococcal infection [None]
